FAERS Safety Report 10237251 (Version 2)
Quarter: 2014Q2

REPORT INFORMATION
  Report Type: Spontaneous
  Country: US (occurrence: US)
  Receive Date: 20140613
  Receipt Date: 20140620
  Transmission Date: 20141212
  Serious: Yes (Death)
  Sender: FDA-Public Use
  Company Number: US-TAKEDA-2014TUS004748

PATIENT
  Sex: Female

DRUGS (3)
  1. BRINTELLIX [Suspect]
     Indication: DEPRESSION
     Dosage: 10 MG, QD
     Route: 048
  2. BRINTELLIX [Suspect]
     Dosage: 20 MG, QD
     Route: 048
  3. CLONAZEPAM [Concomitant]

REACTIONS (2)
  - Death [Fatal]
  - Overdose [Fatal]
